FAERS Safety Report 5062374-0 (Version None)
Quarter: 2006Q3

REPORT INFORMATION
  Report Type: 
  Country: None (occurrence: None)
  Receive Date: 20060726
  Receipt Date: 20060703
  Transmission Date: 20061208
  Serious: Yes (Other)
  Sender: FDA-Public Use
  Company Number: BE-GLAXOSMITHKLINE-B0430240A

PATIENT
  Age: 51 Year
  Sex: Female
  Weight: 160 kg

DRUGS (2)
  1. CLAMOXYL [Suspect]
     Indication: PAIN
     Dosage: 500MG THREE TIMES PER DAY
     Dates: start: 20060629
  2. LIPANTHYL [Concomitant]

REACTIONS (8)
  - DIARRHOEA [None]
  - FACE OEDEMA [None]
  - LARYNGEAL OEDEMA [None]
  - NAUSEA [None]
  - OEDEMA [None]
  - TONGUE OEDEMA [None]
  - URTICARIA GENERALISED [None]
  - VOMITING [None]
